FAERS Safety Report 5142511-X (Version None)
Quarter: 2006Q4

REPORT INFORMATION
  Report Type: 
  Country: None (occurrence: None)
  Receive Date: 20061027
  Receipt Date: 20061023
  Transmission Date: 20070319
  Serious: Yes (Death, Life-Threatening, Other)
  Sender: FDA-Public Use
  Company Number: 2006SP004786

PATIENT
  Age: 76 Year
  Sex: Male

DRUGS (1)
  1. TEMODAR [Suspect]
     Dosage: 100 MG; QD; PO
     Route: 048

REACTIONS (1)
  - MYOCARDIAL INFARCTION [None]
